FAERS Safety Report 15577155 (Version 1)
Quarter: 2018Q4

REPORT INFORMATION
  Report Type: Spontaneous
  Country: GB (occurrence: GB)
  Receive Date: 20181102
  Receipt Date: 20181102
  Transmission Date: 20190205
  Serious: Yes (Other)
  Sender: FDA-Public Use
  Company Number: GB-AUROBINDO-AUR-APL-2018-053075

PATIENT

DRUGS (2)
  1. TEGRETOL [Suspect]
     Active Substance: CARBAMAZEPINE
     Indication: EPILEPSY
     Dosage: DAILY, ( BID 2)
     Route: 065
  2. LEVETIRACETAM FILM-COATED TABLET [Suspect]
     Active Substance: LEVETIRACETAM
     Indication: TONIC CONVULSION
     Dosage: 2 DOSAGE FORM, DAILY, (1 DF, BID)
     Route: 065
     Dates: start: 2004

REACTIONS (17)
  - Product quality issue [Unknown]
  - Anxiety [Unknown]
  - Cerebral disorder [Unknown]
  - Anger [Unknown]
  - Personality disorder [Unknown]
  - Stress [Unknown]
  - Panic disorder [Unknown]
  - Asthenia [Unknown]
  - Aggression [Unknown]
  - Ill-defined disorder [Unknown]
  - Tremor [Unknown]
  - Condition aggravated [Unknown]
  - Palpitations [Unknown]
  - Seizure [Unknown]
  - Pyrexia [Unknown]
  - Loss of consciousness [Unknown]
  - Focal dyscognitive seizures [Unknown]
